FAERS Safety Report 4498581-5 (Version None)
Quarter: 2004Q4

REPORT INFORMATION
  Report Type: 
  Country: None (occurrence: None)
  Receive Date: 20041108
  Receipt Date: 20041026
  Transmission Date: 20050328
  Serious: Yes (Hospitalization)
  Sender: FDA-Public Use
  Company Number: 2004241535US

PATIENT
  Age: 91 Year
  Sex: Female
  Weight: 42.6 kg

DRUGS (5)
  1. XALATAN [Suspect]
     Indication: GLAUCOMA
     Dosage: 1 GTT, QD, OPHTHALMIC
     Route: 047
  2. LORAZEPAM [Concomitant]
  3. ASPIRIN [Concomitant]
  4. OCUVITE [Concomitant]
  5. CALCIUM WITH VITAMIN D (ERGOCALCIFEROL, CALCIUM SODIUM LACTATE, CALCIU [Concomitant]

REACTIONS (7)
  - BLOOD PRESSURE INCREASED [None]
  - CONVULSION [None]
  - DRUG INEFFECTIVE [None]
  - HYPERTONIC BLADDER [None]
  - INSOMNIA [None]
  - POLLAKIURIA [None]
  - WEIGHT DECREASED [None]
